FAERS Safety Report 12394263 (Version 1)
Quarter: 2016Q2

REPORT INFORMATION
  Report Type: Spontaneous
  Country: JP (occurrence: JP)
  Receive Date: 20160523
  Receipt Date: 20160523
  Transmission Date: 20160815
  Serious: Yes (Life-Threatening)
  Sender: FDA-Public Use
  Company Number: JP-ASTRAZENECA-2016SE54616

PATIENT
  Age: 31 Year
  Sex: Female

DRUGS (2)
  1. NEXIUM [Suspect]
     Active Substance: ESOMEPRAZOLE MAGNESIUM
     Dosage: 1 CAPSULE
     Route: 048
  2. 5 OTHER DRUGS [Suspect]
     Active Substance: UNSPECIFIED INGREDIENT
     Dosage: 1 CAPSULE

REACTIONS (1)
  - Suicide attempt [Unknown]
